FAERS Safety Report 10191539 (Version 1)
Quarter: 2014Q2

REPORT INFORMATION
  Report Type: Spontaneous
  Country: US (occurrence: US)
  Receive Date: 20140523
  Receipt Date: 20140523
  Transmission Date: 20141212
  Serious: Yes (Hospitalization, Other)
  Sender: FDA-Public Use
  Company Number: US-JNJFOC-20140508555

PATIENT
  Age: 71 Year
  Sex: Female

DRUGS (2)
  1. RISPERIDONE [Suspect]
     Indication: PRODUCT USED FOR UNKNOWN INDICATION
     Route: 048
     Dates: start: 2009
  2. INVEGA [Suspect]
     Indication: PRODUCT USED FOR UNKNOWN INDICATION
     Route: 048

REACTIONS (10)
  - Cerebrovascular accident [Unknown]
  - Mental disorder [Unknown]
  - Cough [Unknown]
  - Thinking abnormal [Unknown]
  - Diarrhoea [Unknown]
  - Gait disturbance [Unknown]
  - Balance disorder [Unknown]
  - Rhinorrhoea [Unknown]
  - Dizziness [Unknown]
  - Insomnia [Unknown]
